FAERS Safety Report 8395895-3 (Version None)
Quarter: 2012Q2

REPORT INFORMATION
  Report Type: 
  Country: None (occurrence: None)
  Receive Date: 20120529
  Receipt Date: 20120529
  Transmission Date: 20120825
  Serious: Yes (Life-Threatening, Hospitalization, Other)
  Sender: FDA-Public Use
  Company Number: None

PATIENT
  Age: 54 Year
  Sex: Male
  Weight: 84.369 kg

DRUGS (1)
  1. ETODOLAC [Suspect]
     Indication: MUSCLE STRAIN
     Dosage: 400MG BID ORAL
     Route: 048

REACTIONS (13)
  - NAUSEA [None]
  - DISTURBANCE IN ATTENTION [None]
  - OEDEMA PERIPHERAL [None]
  - NIGHT SWEATS [None]
  - MOOD ALTERED [None]
  - ABNORMAL BEHAVIOUR [None]
  - CANDIDIASIS [None]
  - AMNESIA [None]
  - RASH [None]
  - PNEUMONIA [None]
  - DISORIENTATION [None]
  - BRONCHITIS [None]
  - HICCUPS [None]
